FAERS Safety Report 8357281-1 (Version None)
Quarter: 2012Q2

REPORT INFORMATION
  Report Type: 
  Country: None (occurrence: None)
  Receive Date: 20120514
  Receipt Date: 20120507
  Transmission Date: 20120825
  Serious: Yes (Hospitalization, Other)
  Sender: FDA-Public Use
  Company Number: PHHY2012VE040168

PATIENT
  Sex: Female

DRUGS (9)
  1. ZOLEDRONOC ACID [Suspect]
     Dosage: 5 MG, ONCE A YEAR
     Route: 042
     Dates: start: 20100607
  2. ZOLEDRONOC ACID [Suspect]
     Dosage: 5 MG, ONCE A YEAR
     Route: 042
     Dates: start: 20110606
  3. OXYBUTYNIN [Concomitant]
     Indication: INCONTINENCE
     Dosage: 10 MG, QD
     Route: 048
     Dates: start: 20111101
  4. ZOLEDRONOC ACID [Suspect]
     Indication: OSTEOPOROSIS
     Dosage: 5 MG, ONCE A YEAR
     Route: 042
     Dates: start: 20080225
  5. ZOLEDRONOC ACID [Suspect]
     Dosage: 5 MG, ONCE A YEAR
     Route: 042
     Dates: start: 20090612
  6. DECA-DURABOLIN [Concomitant]
     Dosage: 25 MG, EACH 4 MONTHS ON 2011 (SHE RECEIVED THREE DOSES)
     Route: 030
     Dates: start: 20110505
  7. PREMARIN [Concomitant]
     Indication: VULVOVAGINAL DISCOMFORT
     Dosage: (NATURAL ESTROGEN CONJUGATED 0.625MG) TOPIC ROUTE ONCE A DAY ON APR 2012
     Route: 061
     Dates: start: 20120401
  8. TOFRANIL [Concomitant]
     Indication: DEPRESSION
     Dosage: 10 MG, QD
     Route: 048
     Dates: start: 20111101
  9. GLUCOSAMINE [Concomitant]
     Indication: OSTEOPOROSIS
     Dosage: 15 G, QD
     Route: 048
     Dates: start: 20110505

REACTIONS (4)
  - FALL [None]
  - LIGAMENT SPRAIN [None]
  - CYSTOCELE [None]
  - RECTAL PROLAPSE [None]
